FAERS Safety Report 21741778 (Version 1)
Quarter: 2022Q4

REPORT INFORMATION
  Report Type: Spontaneous
  Country: None (occurrence: US)
  Receive Date: 20221216
  Receipt Date: 20221216
  Transmission Date: 20230113
  Serious: No
  Sender: FDA-Public Use
  Company Number: US-EIGER BIOPHARMACEUTICALS-EIG-2022-000016

PATIENT
  Age: 11 Year
  Sex: Female

DRUGS (4)
  1. ZOKINVY [Suspect]
     Active Substance: LONAFARNIB
     Indication: Progeria
     Dosage: 75 MILLIGRAM, IN THE EVENING, VIA G-TUBE
     Dates: start: 2019
  2. ZOKINVY [Suspect]
     Active Substance: LONAFARNIB
     Indication: Progeria
     Dosage: 100 MILLIGRAM, IN THE MORNING, VIA G-TUBE
     Dates: start: 2019
  3. OMEPRAZOLE [Concomitant]
     Active Substance: OMEPRAZOLE
  4. ERYTHROMYCIN [Concomitant]
     Active Substance: ERYTHROMYCIN

REACTIONS (3)
  - Off label use [Unknown]
  - Diarrhoea [Recovered/Resolved]
  - Vomiting [Unknown]

NARRATIVE: CASE EVENT DATE: 20221101
